FAERS Safety Report 5932713-4 (Version None)
Quarter: 2008Q4

REPORT INFORMATION
  Report Type: 
  Country: None (occurrence: None)
  Receive Date: 20081027
  Receipt Date: 20081027
  Transmission Date: 20090506
  Serious: Yes (Life-Threatening, Hospitalization)
  Sender: FDA-Public Use
  Company Number: None

PATIENT
  Age: 73 Year
  Sex: Male
  Weight: 75.2 kg

DRUGS (8)
  1. GADOLINIUM [Suspect]
     Indication: DIAGNOSTIC PROCEDURE
     Dosage: 8 ML ONCE IV BOLUS
     Route: 040
     Dates: start: 20080912, end: 20080912
  2. SPIRIVA [Concomitant]
  3. SIMVASTATIN [Concomitant]
  4. TRAVATAN [Concomitant]
  5. PRILOSEC [Concomitant]
  6. WARFARIN SODIUM [Concomitant]
  7. LOVENOX [Concomitant]
  8. TIMOLOL [Concomitant]

REACTIONS (4)
  - BREATH SOUNDS ABNORMAL [None]
  - DYSPNOEA [None]
  - ENDOTRACHEAL INTUBATION COMPLICATION [None]
  - UNRESPONSIVE TO STIMULI [None]
